FAERS Safety Report 24545354 (Version 2)
Quarter: 2025Q1

REPORT INFORMATION
  Report Type: Report from Study
  Country: CN (occurrence: CN)
  Receive Date: 20241024
  Receipt Date: 20250129
  Transmission Date: 20250409
  Serious: No
  Sender: ALEXION PHARMACEUTICALS
  Company Number: CN-AstraZeneca-2024A018141

PATIENT
  Age: 66 Year

DRUGS (6)
  1. OLAPARIB [Suspect]
     Active Substance: OLAPARIB
     Indication: Malignant peritoneal neoplasm
  2. OLAPARIB [Suspect]
     Active Substance: OLAPARIB
  3. ABIRATERONE [Concomitant]
     Active Substance: ABIRATERONE
     Indication: Hormone-refractory prostate cancer
  4. PREDNISONE ACETATE [Concomitant]
     Active Substance: PREDNISONE ACETATE
     Indication: Prophylaxis
  5. GOSERELIN [Concomitant]
     Active Substance: GOSERELIN
     Indication: Hormone-refractory prostate cancer
  6. MIRABEGRON [Concomitant]
     Active Substance: MIRABEGRON
     Indication: Prostate cancer

REACTIONS (1)
  - Anaemia [Not Recovered/Not Resolved]
